FAERS Safety Report 4535463-4 (Version None)
Quarter: 2004Q4

REPORT INFORMATION
  Report Type: 
  Country: None (occurrence: None)
  Receive Date: 20041214
  Receipt Date: 20040922
  Transmission Date: 20050328
  Serious: No
  Sender: FDA-Public Use
  Company Number: USA040978918

PATIENT
  Age: 56 Year
  Sex: Male
  Weight: 84 kg

DRUGS (1)
  1. CIALIS [Suspect]
     Dosage: 20 MG/1 DAY
     Dates: start: 20040701

REACTIONS (1)
  - ANORGASMIA [None]
